FAERS Safety Report 9621226 (Version 4)
Quarter: 2014Q2

REPORT INFORMATION
  Report Type: Spontaneous
  Country: JP (occurrence: JP)
  Receive Date: 20131015
  Receipt Date: 20140403
  Transmission Date: 20141212
  Serious: Yes (Death, Life-Threatening, Hospitalization)
  Sender: FDA-Public Use
  Company Number: PHHY2013JP114653

PATIENT
  Age: 56 Year
  Sex: Female
  Weight: 60 kg

DRUGS (17)
  1. NEORAL [Suspect]
     Indication: AUTOIMMUNE DISORDER
     Dosage: 170 MG, UNK
     Route: 048
     Dates: start: 20121229, end: 20130102
  2. NEORAL [Suspect]
     Dosage: 150 MG, UNK
     Route: 048
     Dates: start: 20130103, end: 20130103
  3. NEORAL [Suspect]
     Dosage: 135 MG, UNK
     Route: 048
     Dates: start: 20130104, end: 20130109
  4. NEORAL [Suspect]
     Dosage: 100 MG, UNK
     Route: 048
     Dates: start: 20130110, end: 20130115
  5. NEORAL [Suspect]
     Dosage: 100 MG, UNK
     Route: 048
     Dates: start: 20130122, end: 20130204
  6. PREDONINE [Suspect]
     Dosage: 40 MG, UNK
     Route: 048
     Dates: start: 20121115, end: 20121121
  7. PREDONINE [Suspect]
     Dosage: 60 MG, UNK
     Route: 048
     Dates: start: 20121122, end: 20121210
  8. PREDONINE [Suspect]
     Dosage: 50 MG, UNK
     Route: 048
     Dates: start: 20121211, end: 20121217
  9. PREDONINE [Suspect]
     Dosage: 40 MG, UNK
     Route: 048
     Dates: start: 20121218, end: 20121228
  10. PREDONINE [Suspect]
     Dosage: 30 MG, UNK
     Route: 048
     Dates: start: 20121211, end: 20121217
  11. PREDONINE [Suspect]
     Dosage: 25 MG, UNK
     Route: 048
     Dates: start: 20121218, end: 20121228
  12. PREDONINE [Suspect]
     Dosage: 20 MG, UNK
     Route: 048
     Dates: start: 20121229, end: 20130118
  13. PREDONINE [Suspect]
     Dates: start: 20130119, end: 20130130
  14. PREDONINE [Suspect]
     Dates: start: 20130131, end: 20130203
  15. COLCHICINE [Concomitant]
     Dosage: 1 MG, UNK
     Route: 048
     Dates: start: 20121119, end: 20121218
  16. COLCHICINE [Concomitant]
     Dosage: 1.5 UNK, UNK
     Route: 048
  17. SOLU MEDROL [Concomitant]
     Dosage: 1000 MG, UNK
     Dates: start: 20121114

REACTIONS (9)
  - Sepsis [Fatal]
  - Abdominal pain [Unknown]
  - Large intestine perforation [Recovering/Resolving]
  - General physical health deterioration [Unknown]
  - Respiratory disorder [Unknown]
  - Depressed level of consciousness [Unknown]
  - Aphagia [Unknown]
  - Muscular weakness [Unknown]
  - Peritonitis [Unknown]
